FAERS Safety Report 5741791-7 (Version None)
Quarter: 2008Q2

REPORT INFORMATION
  Report Type: 
  Country: None (occurrence: None)
  Receive Date: 20080515
  Receipt Date: 20080515
  Transmission Date: 20081010
  Serious: Yes (Life-Threatening, Hospitalization)
  Sender: FDA-Public Use
  Company Number: None

PATIENT
  Age: 61 Year
  Sex: Female
  Weight: 68.0396 kg

DRUGS (1)
  1. BEE POLLEN (PURCHASED AT NM. STATE FAIR) [Suspect]
     Indication: RHINITIS ALLERGIC
     Dosage: 2TSP. ORAL 1TIME
     Route: 048

REACTIONS (3)
  - ANAPHYLACTIC REACTION [None]
  - APNOEA [None]
  - SELF-MEDICATION [None]
